FAERS Safety Report 6030365-9 (Version None)
Quarter: 2009Q1

REPORT INFORMATION
  Report Type: 
  Country: None (occurrence: None)
  Receive Date: 20090107
  Receipt Date: 20080730
  Transmission Date: 20090719
  Serious: No
  Sender: FDA-Public Use
  Company Number: US-BAYER-200813281BCC

PATIENT
  Age: 70 Year
  Sex: Female
  Weight: 86 kg

DRUGS (5)
  1. ALEVE [Suspect]
     Indication: ARTHRITIS
     Dosage: TOTAL DAILY DOSE: 880 MG  UNIT DOSE: 220 MG
     Route: 048
  2. PREDNISONE [Concomitant]
  3. MULTI-VITAMIN [Concomitant]
  4. METHOTREXATE [Concomitant]
  5. PRIMROSE [Concomitant]

REACTIONS (1)
  - BLOOD PRESSURE INCREASED [None]
